FAERS Safety Report 21134068 (Version 1)
Quarter: 2022Q3

REPORT INFORMATION
  Report Type: Other
  Country: CH (occurrence: CH)
  Receive Date: 20220726
  Receipt Date: 20220726
  Transmission Date: 20221027
  Serious: Yes (Hospitalization)
  Sender: FDA-Public Use
  Company Number: None

PATIENT
  Age: 63 Year
  Sex: Male
  Weight: 62 kg

DRUGS (1)
  1. MABTHERA [Suspect]
     Active Substance: RITUXIMAB
     Indication: Mantle cell lymphoma
     Dosage: SINGLE DOSE OF 750 MG EVERY TWO MONTHS (BODY SURFACE AREA: 1.8 M2, SO 41 MG/M2 EVERY TWO MONTHS).
     Route: 041
     Dates: start: 20200807, end: 20220518

REACTIONS (5)
  - Diarrhoea [Recovered/Resolved]
  - Colitis [Recovered/Resolved]
  - Rectal ulcer haemorrhage [Recovered/Resolved]
  - Pneumocystis jirovecii pneumonia [Recovered/Resolved]
  - Hypogammaglobulinaemia [Unknown]

NARRATIVE: CASE EVENT DATE: 20220525
